FAERS Safety Report 8637590 (Version 4)
Quarter: 2014Q1

REPORT INFORMATION
  Report Type: Report from Study
  Country: MX (occurrence: MX)
  Receive Date: 20120627
  Receipt Date: 20140317
  Transmission Date: 20141002
  Serious: Yes (Hospitalization, Other)
  Sender: FDA-Public Use
  Company Number: PHHY2012MX053976

PATIENT
  Age: 81 Year
  Sex: Male

DRUGS (8)
  1. STALEVO [Suspect]
     Indication: PARKINSON^S DISEASE
     Dosage: 2 DF,  2 TABLETS OF 200/50/12.5 MG, PER DAY
     Route: 048
  2. STALEVO [Suspect]
     Indication: TREMOR
  3. EXELON PATCH [Suspect]
     Dosage: 9.5 MG, PER DAY
     Route: 062
     Dates: start: 2009
  4. EBIXA [Concomitant]
     Dosage: 1 DF, DAILY
     Dates: start: 2011
  5. OLMESARTAN [Concomitant]
     Dosage: 1 DF, DAILY
  6. CYMBALTA [Concomitant]
     Indication: DEPRESSION
     Dosage: 1 DF, DAILY
  7. LYRICA [Concomitant]
     Indication: DEPRESSION
     Dosage: 1 DF, DAILY
     Dates: start: 201206
  8. SPIRIVA [Concomitant]
     Dosage: UNK UKN, UNK

REACTIONS (4)
  - Embolism [Recovered/Resolved]
  - Spinal column injury [Not Recovered/Not Resolved]
  - Dyspnoea [Not Recovered/Not Resolved]
  - Depression [Not Recovered/Not Resolved]
